FAERS Safety Report 4883209-2 (Version None)
Quarter: 2006Q1

REPORT INFORMATION
  Report Type: 
  Country: None (occurrence: None)
  Receive Date: 20060117
  Receipt Date: 20060117
  Transmission Date: 20060701
  Serious: Yes (Other)
  Sender: FDA-Public Use
  Company Number: None

PATIENT
  Sex: Male
  Weight: 72.5755 kg

DRUGS (1)
  1. XIFAXAN [Suspect]
     Indication: DIARRHOEA INFECTIOUS
     Dosage: 400 MG TID PO
     Route: 048
     Dates: start: 20060110, end: 20060113

REACTIONS (4)
  - CLOSTRIDIUM COLITIS [None]
  - CONDITION AGGRAVATED [None]
  - DIARRHOEA [None]
  - RECTAL TENESMUS [None]
